FAERS Safety Report 8161805-7 (Version None)
Quarter: 2012Q1

REPORT INFORMATION
  Report Type: 
  Country: None (occurrence: None)
  Receive Date: 20120224
  Receipt Date: 20120215
  Transmission Date: 20120608
  Serious: Yes (Hospitalization)
  Sender: FDA-Public Use
  Company Number: US-BAYER-2012-017000

PATIENT
  Age: 52 Year
  Sex: Female
  Weight: 81.633 kg

DRUGS (12)
  1. CLINDAMYCIN [Concomitant]
     Indication: TOOTH ABSCESS
     Dosage: 150 MG, QID
     Dates: start: 20100121, end: 20100130
  2. PREDNISONE [Concomitant]
     Indication: DRUG HYPERSENSITIVITY
     Dosage: 10 MG, QD
  3. MUCINEX [Concomitant]
     Dosage: UNK
     Dates: start: 20091130
  4. DROSPIRENONE AND ETHINYL ESTRADIOL [Suspect]
     Dosage: UNK
  5. CARDIZEM CD [Concomitant]
     Dosage: 240-360MG DAILY
     Dates: start: 20090313
  6. YASMIN [Suspect]
     Dosage: UNK
  7. HYDROCHLOROTHIAZIDE [Concomitant]
     Dosage: 12.5 MG, QD
  8. NASACORT AQ [Concomitant]
     Dosage: UNK
     Dates: start: 20091130
  9. ALLEGRA [Concomitant]
     Dosage: UNK
     Dates: start: 20091130
  10. LOHIST [Concomitant]
     Indication: NASOPHARYNGITIS
     Dosage: UNK UNK, BID
  11. XYZAL [Concomitant]
     Dosage: 5 MG, QD
  12. BACTRIM [Concomitant]
     Dosage: 800MG-160MG TWICE DAILY
     Dates: start: 20091130

REACTIONS (1)
  - PULMONARY EMBOLISM [None]
